FAERS Safety Report 4856220-5 (Version None)
Quarter: 2005Q4

REPORT INFORMATION
  Report Type: 
  Country: None (occurrence: None)
  Receive Date: 20051216
  Receipt Date: 20051202
  Transmission Date: 20060501
  Serious: Yes (Hospitalization)
  Sender: FDA-Public Use
  Company Number: FRWYE200702DEC05

PATIENT
  Age: 30 Year
  Sex: Female

DRUGS (2)
  1. ENBREL [Suspect]
     Indication: ANKYLOSING SPONDYLITIS
     Dosage: UNKNOWN
     Route: 058
     Dates: start: 20050101, end: 20050801
  2. NOVATREX [Suspect]
     Indication: ANKYLOSING SPONDYLITIS
     Dosage: UNKNOWN
     Route: 048

REACTIONS (8)
  - CEREBRAL DISORDER [None]
  - DEMYELINATION [None]
  - DIPLOPIA [None]
  - FOLATE DEFICIENCY [None]
  - GAIT DISTURBANCE [None]
  - HEADACHE [None]
  - IIIRD NERVE PARESIS [None]
  - SOMNOLENCE [None]
